FAERS Safety Report 4523835-3 (Version None)
Quarter: 2004Q4

REPORT INFORMATION
  Report Type: 
  Country: None (occurrence: None)
  Receive Date: 20041101
  Receipt Date: 20040810
  Transmission Date: 20050328
  Serious: Yes (Hospitalization, Other)
  Sender: FDA-Public Use
  Company Number: US086637

PATIENT
  Age: 65 Year
  Sex: Male
  Weight: 51.8 kg

DRUGS (6)
  1. EPOGEN [Suspect]
     Indication: DIALYSIS
     Dosage: 30000 IU, 3 IN 1 WEEKS, IV
     Route: 042
     Dates: start: 20031101
  2. NEPHRO-VITE [Concomitant]
  3. SERTRALINE HYDROCHLORIDE [Concomitant]
  4. ISOPHANE INSULIN [Concomitant]
  5. INSULIN [Concomitant]
  6. NEUPOGEN [Concomitant]

REACTIONS (3)
  - BONE MARROW DEPRESSION [None]
  - INFECTION [None]
  - THERAPEUTIC RESPONSE DECREASED [None]
